FAERS Safety Report 17091503 (Version 1)
Quarter: 2019Q4

REPORT INFORMATION
  Report Type: Report from Study
  Country: None (occurrence: AT)
  Receive Date: 20191129
  Receipt Date: 20191129
  Transmission Date: 20200122
  Serious: Yes (Hospitalization, Other)
  Sender: FDA-Public Use
  Company Number: AT-ABBVIE-19K-009-3173514-00

PATIENT
  Age: 78 Year
  Sex: Male
  Weight: 61 kg

DRUGS (14)
  1. DOXAZOCIN [Concomitant]
     Active Substance: DOXAZOSIN MESYLATE
     Indication: HYPERTENSION
  2. GLASDEGIB [Concomitant]
     Active Substance: GLASDEGIB
     Indication: PRODUCT USED FOR UNKNOWN INDICATION
  3. VALACICLOVIR [Concomitant]
     Active Substance: VALACYCLOVIR HYDROCHLORIDE
     Indication: INFECTION PROPHYLAXIS
  4. VORICONAZOL [Concomitant]
     Active Substance: VORICONAZOLE
     Indication: INFECTION PROPHYLAXIS
  5. VENETOCLAX. [Suspect]
     Active Substance: VENETOCLAX
     Route: 048
     Dates: start: 20190901, end: 20190901
  6. AZACITIDINE. [Suspect]
     Active Substance: AZACITIDINE
     Route: 058
     Dates: start: 2019
  7. ENALAPRIL HCT [Concomitant]
     Active Substance: ENALAPRIL\HYDROCHLOROTHIAZIDE
     Indication: HYPERTENSION
  8. VENETOCLAX. [Suspect]
     Active Substance: VENETOCLAX
     Route: 048
     Dates: start: 20190829, end: 20190829
  9. VENETOCLAX. [Suspect]
     Active Substance: VENETOCLAX
     Route: 048
     Dates: start: 20190830, end: 20190830
  10. AZACITIDINE. [Suspect]
     Active Substance: AZACITIDINE
     Indication: ACUTE MYELOID LEUKAEMIA
     Dosage: ALTERNATE DOSING SCHEDULE, DAILY FOR 5 DAYS SINCE CYCLE 5 (C5).
     Route: 058
     Dates: start: 20190305, end: 20190827
  11. EUSAPRIM [Concomitant]
     Active Substance: SULFAMETHOXAZOLE\TRIMETHOPRIM
     Indication: INFECTION PROPHYLAXIS
  12. VENETOCLAX. [Suspect]
     Active Substance: VENETOCLAX
     Indication: ACUTE MYELOID LEUKAEMIA
     Route: 048
     Dates: start: 20190828, end: 20190828
  13. PANTOPRAZOLE [Concomitant]
     Active Substance: PANTOPRAZOLE
     Indication: PROPHYLAXIS
  14. VENETOCLAX. [Suspect]
     Active Substance: VENETOCLAX
     Dosage: DOSE REDUCED.
     Route: 048
     Dates: start: 20190911

REACTIONS (9)
  - C-reactive protein increased [Unknown]
  - Pyrexia [Recovered/Resolved]
  - Acute myeloid leukaemia [Unknown]
  - C-reactive protein increased [Unknown]
  - Pneumonia fungal [Recovered/Resolved]
  - Neutrophil count abnormal [Unknown]
  - C-reactive protein abnormal [Unknown]
  - Body temperature abnormal [Unknown]
  - White blood cell disorder [Unknown]

NARRATIVE: CASE EVENT DATE: 201908
